FAERS Safety Report 15859975 (Version 1)
Quarter: 2019Q1

REPORT INFORMATION
  Report Type: Report from Study
  Country: US (occurrence: US)
  Receive Date: 20190123
  Receipt Date: 20190123
  Transmission Date: 20190417
  Serious: Yes (Hospitalization)
  Sender: FDA-Public Use
  Company Number: US-GILEAD-2019-0386387

PATIENT
  Age: 83 Year
  Sex: Female

DRUGS (8)
  1. ROSUVASTATIN. [Concomitant]
     Active Substance: ROSUVASTATIN
  2. DONEPEZIL. [Concomitant]
     Active Substance: DONEPEZIL
  3. MEMANTINE. [Concomitant]
     Active Substance: MEMANTINE
  4. AMBRISENTAN [Suspect]
     Active Substance: AMBRISENTAN
     Indication: PULMONARY ARTERIAL HYPERTENSION
     Dosage: 5 MG, QD
     Route: 065
     Dates: start: 20180131
  5. XARELTO [Concomitant]
     Active Substance: RIVAROXABAN
  6. ALOE VESTA PROTECT [Concomitant]
  7. FLECAINIDE [Concomitant]
     Active Substance: FLECAINIDE
  8. DOK [Concomitant]
     Active Substance: DOCUSATE SODIUM

REACTIONS (1)
  - Fall [Unknown]

NARRATIVE: CASE EVENT DATE: 20190114
